FAERS Safety Report 18732525 (Version 2)
Quarter: 2021Q1

REPORT INFORMATION
  Report Type: Spontaneous
  Country: US (occurrence: US)
  Receive Date: 20210112
  Receipt Date: 20210209
  Transmission Date: 20210419
  Serious: Yes (Other)
  Sender: FDA-Public Use
  Company Number: US-ELI_LILLY_AND_COMPANY-US202101000763

PATIENT
  Age: 82 Year
  Sex: Male
  Weight: 93 kg

DRUGS (11)
  1. SELENIUM [Concomitant]
     Active Substance: SELENIUM
  2. VITAMIN D [ERGOCALCIFEROL] [Concomitant]
     Active Substance: ERGOCALCIFEROL
  3. ASA [Concomitant]
     Active Substance: ASPIRIN
  4. SYNTHROID [Concomitant]
     Active Substance: LEVOTHYROXINE SODIUM
  5. ZESTORETIC [Concomitant]
     Active Substance: HYDROCHLOROTHIAZIDE\LISINOPRIL
  6. VITAMIN C [Concomitant]
     Active Substance: ASCORBIC ACID
  7. ZINC. [Concomitant]
     Active Substance: ZINC
  8. ALLOPURINOL. [Concomitant]
     Active Substance: ALLOPURINOL
  9. BAMLANIVIMAB 700MG [Suspect]
     Active Substance: BAMLANIVIMAB
     Indication: COVID-19
     Dosage: 700 MG, SINGLE
     Route: 042
     Dates: start: 20201231, end: 20201231
  10. FENOFIBRATE. [Concomitant]
     Active Substance: FENOFIBRATE
  11. TOBRADEX [Concomitant]
     Active Substance: DEXAMETHASONE\TOBRAMYCIN

REACTIONS (10)
  - Blood creatinine increased [Unknown]
  - Fibrin D dimer increased [Unknown]
  - Diarrhoea [Unknown]
  - Syncope [Unknown]
  - Anal incontinence [Unknown]
  - Blood urea increased [Unknown]
  - Blood pressure increased [Unknown]
  - Nausea [Unknown]
  - Infusion related reaction [Unknown]
  - Illness [Unknown]

NARRATIVE: CASE EVENT DATE: 20201231
